FAERS Safety Report 22266838 (Version 1)
Quarter: 2023Q2

REPORT INFORMATION
  Report Type: Spontaneous
  Country: US (occurrence: None)
  Receive Date: 20230427
  Receipt Date: 20230427
  Transmission Date: 20230721
  Serious: Yes (Death)
  Sender: FDA-Public Use
  Company Number: None

PATIENT
  Sex: Female

DRUGS (2)
  1. BOTOX [Suspect]
     Active Substance: ONABOTULINUMTOXINA
     Indication: Migraine
     Dosage: OTHER QUANTITY : 200 UNIT;?OTHER FREQUENCY : EVERY 12 WEEKS ;?
     Route: 058
     Dates: start: 20170912
  2. BOTOX [Suspect]
     Active Substance: ONABOTULINUMTOXINA
     Indication: Migraine without aura
     Dosage: OTHER QUANTITY : 155 UNITS;?OTHER FREQUENCY : EVERY 12 WEEKS;?
     Route: 058

REACTIONS (1)
  - Death [None]
